FAERS Safety Report 22055457 (Version 1)
Quarter: 2023Q1

REPORT INFORMATION
  Report Type: Spontaneous
  Country: DE (occurrence: DE)
  Receive Date: 20230302
  Receipt Date: 20230302
  Transmission Date: 20230418
  Serious: Yes (Other)
  Sender: FDA-Public Use
  Company Number: None

PATIENT
  Age: 43 Year
  Sex: Female
  Weight: 80 kg

DRUGS (1)
  1. DROSPIRENONE [Suspect]
     Active Substance: DROSPIRENONE
     Indication: Heavy menstrual bleeding
     Dosage: 1X1
     Route: 048
     Dates: start: 202202, end: 202301

REACTIONS (2)
  - Arrhythmia [Not Recovered/Not Resolved]
  - Extrasystoles [Not Recovered/Not Resolved]

NARRATIVE: CASE EVENT DATE: 20220801
